FAERS Safety Report 10977787 (Version 1)
Quarter: 2015Q1

REPORT INFORMATION
  Report Type: Spontaneous
  Country: US (occurrence: None)
  Receive Date: 20150331
  Receipt Date: 20150331
  Transmission Date: 20150721
  Serious: Yes (Other)
  Sender: FDA-Public Use
  Company Number: 2015SA039156

PATIENT
  Age: 48 Year
  Sex: Male

DRUGS (1)
  1. GOLD BOND BABY CORNSTARCH PLUS [Suspect]
     Active Substance: KAOLIN\STARCH, CORN\ZINC OXIDE
     Indication: PROPHYLAXIS
     Dosage: ; ONCE; UNKNOWN
     Dates: start: 20150105, end: 20150105

REACTIONS (8)
  - Gait disturbance [None]
  - Scab [None]
  - Penile blister [None]
  - Penile haemorrhage [None]
  - Hypersensitivity [None]
  - Genital burning sensation [None]
  - Wound secretion [None]
  - Thermal burn [None]

NARRATIVE: CASE EVENT DATE: 20150105
